FAERS Safety Report 14249171 (Version 7)
Quarter: 2019Q4

REPORT INFORMATION
  Report Type: Report from Study
  Country: US (occurrence: US)
  Receive Date: 20171204
  Receipt Date: 20191029
  Transmission Date: 20200122
  Serious: Yes (Other)
  Sender: FDA-Public Use
  Company Number: US-ACTELION-A-US2017-163301

PATIENT
  Age: 63 Year
  Sex: Female
  Weight: 62.59 kg

DRUGS (2)
  1. ADCIRCA [Concomitant]
     Active Substance: TADALAFIL
  2. UPTRAVI [Suspect]
     Active Substance: SELEXIPAG
     Indication: PULMONARY ARTERIAL HYPERTENSION
     Dosage: 800 MCG, BID
     Route: 048
     Dates: start: 20171024

REACTIONS (11)
  - Swelling face [Unknown]
  - Chemotherapy [Unknown]
  - Headache [Unknown]
  - Arthritis [Unknown]
  - Upper respiratory tract infection [Unknown]
  - Pain in jaw [Unknown]
  - Stress [Unknown]
  - Myalgia [Unknown]
  - Arthralgia [Unknown]
  - Diarrhoea [Unknown]
  - Malaise [Unknown]

NARRATIVE: CASE EVENT DATE: 201801
